FAERS Safety Report 17642397 (Version 1)
Quarter: 2020Q2

REPORT INFORMATION
  Report Type: Spontaneous
  Country: US (occurrence: US)
  Receive Date: 20200406
  Receipt Date: 20200406
  Transmission Date: 20200713
  Serious: Yes (Hospitalization)
  Sender: FDA-Public Use
  Company Number: None

PATIENT
  Sex: Female

DRUGS (2)
  1. SILDENAFIL. [Suspect]
     Active Substance: SILDENAFIL
     Indication: PULMONARY ARTERIAL HYPERTENSION
     Route: 048
     Dates: start: 20190906
  2. ALEXA [ENOXAPARIN SODIUM] [Suspect]
     Active Substance: ENOXAPARIN SODIUM

REACTIONS (2)
  - Therapy cessation [None]
  - Large intestinal haemorrhage [None]
